FAERS Safety Report 9657115 (Version 1)
Quarter: 2013Q4

REPORT INFORMATION
  Report Type: Spontaneous
  Country: US (occurrence: US)
  Receive Date: 20131030
  Receipt Date: 20131030
  Transmission Date: 20140711
  Serious: Yes (Hospitalization)
  Sender: FDA-Public Use
  Company Number: US-PFIZER INC-2013307599

PATIENT
  Sex: Male

DRUGS (1)
  1. VFEND [Suspect]
     Dosage: UNK

REACTIONS (4)
  - Leukaemia [Unknown]
  - Neoplasm recurrence [Unknown]
  - Bedridden [Unknown]
  - Fatigue [Unknown]
